FAERS Safety Report 6105541-7 (Version None)
Quarter: 2009Q1

REPORT INFORMATION
  Report Type: 
  Country: None (occurrence: None)
  Receive Date: 20090306
  Receipt Date: 20090304
  Transmission Date: 20090719
  Serious: Yes (Hospitalization)
  Sender: FDA-Public Use
  Company Number: B0563153A

PATIENT
  Age: 49 Year
  Sex: Female

DRUGS (12)
  1. AMOXICILLIN AND CLAVULANATE POTASSIUM [Suspect]
     Indication: INFECTION
     Dates: start: 20081019
  2. AZACTAM [Suspect]
     Indication: URINARY TRACT INFECTION
     Dosage: 1G THREE TIMES PER DAY
     Route: 042
     Dates: start: 20081103, end: 20081109
  3. VANCOMYCINE [Suspect]
     Indication: URINARY TRACT INFECTION
     Route: 042
     Dates: start: 20081103, end: 20081110
  4. HYPNOVEL [Suspect]
     Indication: SEDATION
     Dosage: 3600ML PER DAY
     Route: 042
     Dates: start: 20081030, end: 20081108
  5. SUFENTA PRESERVATIVE FREE [Suspect]
     Indication: SEDATION
     Dosage: 120ML PER DAY
     Route: 042
     Dates: start: 20081030, end: 20081108
  6. GENTAMYCINE [Suspect]
     Indication: URINARY TRACT INFECTION
     Dosage: 500MG PER DAY
     Route: 042
     Dates: start: 20081102, end: 20081103
  7. TAHOR [Suspect]
     Indication: CEREBROVASCULAR ACCIDENT
     Dosage: 40MG PER DAY
     Route: 048
     Dates: start: 20081019, end: 20081105
  8. DEROXAT [Concomitant]
     Route: 065
  9. LEXOMIL [Concomitant]
     Route: 065
  10. KARDEGIC [Concomitant]
     Dosage: 250MG PER DAY
     Route: 065
     Dates: start: 20081019
  11. CALCIPARINE [Concomitant]
     Indication: DEEP VEIN THROMBOSIS
     Route: 065
     Dates: start: 20081022
  12. VITAMIN K ANTAGONIST [Concomitant]
     Indication: DEEP VEIN THROMBOSIS
     Route: 065
     Dates: start: 20081029

REACTIONS (6)
  - ALANINE AMINOTRANSFERASE INCREASED [None]
  - ASPARTATE AMINOTRANSFERASE INCREASED [None]
  - BLOOD ALKALINE PHOSPHATASE INCREASED [None]
  - CYTOLYTIC HEPATITIS [None]
  - GAMMA-GLUTAMYLTRANSFERASE INCREASED [None]
  - RASH [None]
